FAERS Safety Report 8859513 (Version 1)
Quarter: 2012Q4

REPORT INFORMATION
  Report Type: 
  Country: US (occurrence: US)
  Receive Date: 20121024
  Receipt Date: 20121024
  Transmission Date: 20130627
  Serious: Yes (Other)
  Sender: FDA-Public Use
  Company Number: US-ELI_LILLY_AND_COMPANY-US201210005155

PATIENT
  Sex: Female

DRUGS (1)
  1. CYMBALTA [Suspect]
     Indication: DEPRESSION
     Dosage: 30 mg, qd
     Dates: end: 201012

REACTIONS (12)
  - Suicidal ideation [Unknown]
  - Dizziness [Unknown]
  - Nausea [Unknown]
  - Drug withdrawal syndrome [Unknown]
  - Constipation [Unknown]
  - Abdominal distension [Unknown]
  - Weight increased [Unknown]
  - Blood cholesterol increased [Unknown]
  - Coccydynia [Unknown]
  - Arthralgia [Unknown]
  - Drug ineffective [Unknown]
  - Incorrect dose administered [Recovered/Resolved]
